FAERS Safety Report 6373745-4 (Version None)
Quarter: 2009Q3

REPORT INFORMATION
  Report Type: 
  Country: None (occurrence: None)
  Receive Date: 20090924
  Receipt Date: 20090423
  Transmission Date: 20100115
  Serious: Yes (Hospitalization)
  Sender: FDA-Public Use
  Company Number: US-ASTRAZENECA-2009UW10096

PATIENT
  Sex: Male

DRUGS (3)
  1. SEROQUEL [Suspect]
     Indication: BIPOLAR DISORDER
     Dosage: 400 MG AM; 600 MG PM
     Route: 048
     Dates: start: 20070101
  2. SEROQUEL [Suspect]
     Dosage: 400 MG AM; 600 MG PM
     Route: 048
  3. DILTIAZEM [Concomitant]

REACTIONS (3)
  - DRUG SCREEN POSITIVE [None]
  - FATIGUE [None]
  - SUICIDE ATTEMPT [None]
